FAERS Safety Report 21303266 (Version 1)
Quarter: 2022Q3

REPORT INFORMATION
  Report Type: Spontaneous
  Country: US (occurrence: US)
  Receive Date: 20220907
  Receipt Date: 20220907
  Transmission Date: 20221027
  Serious: No
  Sender: FDA-Public Use
  Company Number: US-ELI_LILLY_AND_COMPANY-US202209001772

PATIENT
  Age: 76 Year
  Sex: Male

DRUGS (1)
  1. TRULICITY [Suspect]
     Active Substance: DULAGLUTIDE
     Indication: Product used for unknown indication
     Dosage: 1.5 MG, UNKNOWN
     Route: 065
     Dates: start: 202207

REACTIONS (6)
  - Eating disorder [Unknown]
  - Sleep disorder [Unknown]
  - Gastrointestinal sounds abnormal [Unknown]
  - Pollakiuria [Not Recovered/Not Resolved]
  - Dizziness [Unknown]
  - Constipation [Recovering/Resolving]

NARRATIVE: CASE EVENT DATE: 20220701
